FAERS Safety Report 24897583 (Version 8)
Quarter: 2025Q2

REPORT INFORMATION
  Report Type: Spontaneous
  Country: JP (occurrence: JP)
  Receive Date: 20250129
  Receipt Date: 20250527
  Transmission Date: 20250717
  Serious: Yes (Death, Other)
  Sender: ALEXION PHARMACEUTICALS
  Company Number: None

PATIENT
  Age: 78 Year
  Weight: 46 kg

DRUGS (34)
  1. LYNPARZA [Suspect]
     Active Substance: OLAPARIB
     Indication: Ovarian cancer
     Dosage: 300 MILLIGRAM, BID
  2. LYNPARZA [Suspect]
     Active Substance: OLAPARIB
     Dosage: 200 MILLIGRAM, BID
  3. LYNPARZA [Suspect]
     Active Substance: OLAPARIB
     Dosage: 200 MILLIGRAM, BID
  4. OLAPARIB [Suspect]
     Active Substance: OLAPARIB
     Indication: Ovarian cancer
     Dosage: 200 MILLIGRAM, BID
  5. OLAPARIB [Suspect]
     Active Substance: OLAPARIB
     Dosage: 200 MILLIGRAM, BID
  6. BISOPROLOL [Concomitant]
     Active Substance: BISOPROLOL
  7. BISOPROLOL [Concomitant]
     Active Substance: BISOPROLOL
  8. BISOPROLOL [Concomitant]
     Active Substance: BISOPROLOL
  9. POTASSIUM IODIDE [Concomitant]
     Active Substance: POTASSIUM IODIDE
  10. POTASSIUM IODIDE [Concomitant]
     Active Substance: POTASSIUM IODIDE
  11. POTASSIUM IODIDE [Concomitant]
     Active Substance: POTASSIUM IODIDE
  12. ACETAMINOPHEN [Concomitant]
     Active Substance: ACETAMINOPHEN
  13. ACETAMINOPHEN [Concomitant]
     Active Substance: ACETAMINOPHEN
  14. ACETAMINOPHEN [Concomitant]
     Active Substance: ACETAMINOPHEN
  15. CALCIUM POLYSTYRENE SULFONATE [Concomitant]
     Active Substance: CALCIUM POLYSTYRENE SULFONATE
     Indication: Hyperkalaemia
  16. MAGNESIUM OXIDE [Concomitant]
     Active Substance: MAGNESIUM OXIDE
     Indication: Constipation
     Dosage: 250 MILLIGRAM, BID
     Route: 065
  17. MAGNESIUM OXIDE [Concomitant]
     Active Substance: MAGNESIUM OXIDE
  18. MAGNESIUM OXIDE [Concomitant]
     Active Substance: MAGNESIUM OXIDE
  19. EDOXABAN TOSYLATE [Concomitant]
     Active Substance: EDOXABAN TOSYLATE
     Indication: Deep vein thrombosis
     Dosage: 30 MILLIGRAM, QD
  20. EDOXABAN TOSYLATE [Concomitant]
     Active Substance: EDOXABAN TOSYLATE
     Dosage: 30 MILLIGRAM, QD
  21. HERBALS [Concomitant]
     Active Substance: HERBALS
     Dosage: 1 DOSAGE FORM, TID
  22. ESOMEPRAZOLE [Concomitant]
     Active Substance: ESOMEPRAZOLE
     Dosage: 20 MILLIGRAM, QD
  23. ESOMEPRAZOLE [Concomitant]
     Active Substance: ESOMEPRAZOLE
     Indication: Hiatus hernia
  24. ESOMEPRAZOLE [Concomitant]
     Active Substance: ESOMEPRAZOLE
  25. ESOMEPRAZOLE [Concomitant]
     Active Substance: ESOMEPRAZOLE
  26. ESOMEPRAZOLE [Concomitant]
     Active Substance: ESOMEPRAZOLE
  27. ESOMEPRAZOLE [Concomitant]
     Active Substance: ESOMEPRAZOLE
  28. Azacitidine - dr. reddys [Concomitant]
     Indication: Acute myeloid leukaemia
     Route: 065
  29. Bupleuri tsumura [Concomitant]
     Indication: Neuropathy peripheral
  30. CEFTRIAXONE SODIUM [Concomitant]
     Active Substance: CEFTRIAXONE SODIUM
     Indication: Pyelonephritis acute
     Dosage: 2 GRAM, QD
     Route: 065
  31. EDOXABAN TOSYLATE [Concomitant]
     Active Substance: EDOXABAN TOSYLATE
     Indication: Deep vein thrombosis
  32. EDOXABAN TOSYLATE [Concomitant]
     Active Substance: EDOXABAN TOSYLATE
  33. Senkyu tsumura [Concomitant]
     Indication: Neuropathy peripheral
  34. Allotop l tsumura [Concomitant]
     Indication: Neuropathy peripheral

REACTIONS (6)
  - Acute myeloid leukaemia [Fatal]
  - Metastases to peritoneum [Unknown]
  - Metastases to lymph nodes [Unknown]
  - Febrile neutropenia [Fatal]
  - Pneumonia fungal [Fatal]
  - Renal impairment [Unknown]
